FAERS Safety Report 8060332-5 (Version None)
Quarter: 2012Q1

REPORT INFORMATION
  Report Type: 
  Country: None (occurrence: None)
  Receive Date: 20120120
  Receipt Date: 20111104
  Transmission Date: 20120608
  Serious: No
  Sender: FDA-Public Use
  Company Number: US-NOVEN-11US003562

PATIENT
  Sex: Female
  Weight: 65.76 kg

DRUGS (5)
  1. SELEGILINE [Concomitant]
     Indication: PARKINSON'S DISEASE
  2. STALEVO 100 [Concomitant]
     Indication: PARKINSON'S DISEASE
  3. FENTANYL [Suspect]
     Indication: NECK PAIN
     Dosage: 75 UG/HR, Q72HRS
     Route: 062
     Dates: start: 20110908
  4. AMANTADINE HCL [Concomitant]
     Indication: PARKINSON'S DISEASE
  5. MIRAPEX [Concomitant]
     Indication: PARKINSON'S DISEASE

REACTIONS (3)
  - NAUSEA [None]
  - INADEQUATE ANALGESIA [None]
  - MALAISE [None]
